FAERS Safety Report 16368209 (Version 1)
Quarter: 2019Q2

REPORT INFORMATION
  Report Type: Spontaneous
  Country: US (occurrence: US)
  Receive Date: 20190529
  Receipt Date: 20190529
  Transmission Date: 20190711
  Serious: Yes (Hospitalization)
  Sender: FDA-Public Use
  Company Number: US-VERTEX PHARMACEUTICALS-2019-004823

PATIENT
  Age: 22 Year
  Sex: Female

DRUGS (30)
  1. OMEGA-3                            /01866101/ [Concomitant]
     Active Substance: OMEGA-3 FATTY ACIDS
  2. CAYSTON [Concomitant]
     Active Substance: AZTREONAM
  3. SALINE NASAL MIST [Concomitant]
  4. LANTUS [Concomitant]
     Active Substance: INSULIN GLARGINE
  5. CALCIUM CARBONATE. [Concomitant]
     Active Substance: CALCIUM CARBONATE
  6. FLONASE                            /00908302/ [Concomitant]
     Active Substance: MOMETASONE FUROATE
  7. GINSENG                            /01384001/ [Concomitant]
     Active Substance: ASIAN GINSENG
  8. LEVOFLOXACIN. [Concomitant]
     Active Substance: LEVOFLOXACIN
  9. MELATONIN [Concomitant]
     Active Substance: MELATONIN
  10. PREDNISONE. [Concomitant]
     Active Substance: PREDNISONE
  11. VITAMIN B12 [Concomitant]
     Active Substance: CYANOCOBALAMIN
  12. VITAMIN K [Concomitant]
     Active Substance: PHYTONADIONE
  13. SODIUM CHLORIDE. [Concomitant]
     Active Substance: SODIUM CHLORIDE
     Dosage: 7%
  14. AZITHROMYCIN ANHYDROUS. [Concomitant]
     Active Substance: AZITHROMYCIN ANHYDROUS
  15. MINOCYCLINE [Concomitant]
     Active Substance: MINOCYCLINE\MINOCYCLINE HYDROCHLORIDE
  16. NOVOLOG [Concomitant]
     Active Substance: INSULIN ASPART
  17. SALINE NASAL MIST [Concomitant]
  18. MEPHYTON [Concomitant]
     Active Substance: PHYTONADIONE
  19. MAGNESIUM [Concomitant]
     Active Substance: MAGNESIUM
  20. VITAMIN E                          /00110501/ [Concomitant]
     Active Substance: TOCOPHEROL
  21. ZENPEP [Concomitant]
     Active Substance: PANCRELIPASE AMYLASE\PANCRELIPASE LIPASE\PANCRELIPASE PROTEASE
  22. SYMDEKO [Suspect]
     Active Substance: IVACAFTOR\TEZACAFTOR
     Indication: CYSTIC FIBROSIS
     Dosage: TEZACAFTOR 100 MG, IVACAFTOR 150 MG QAM; IVACAFTOR 150 MG QPM
     Route: 048
     Dates: start: 20180411
  23. ALBUTEROL                          /00139501/ [Concomitant]
     Active Substance: ALBUTEROL
  24. COENZYME Q10 [Concomitant]
     Active Substance: UBIDECARENONE
  25. CULTURELLE [Concomitant]
     Active Substance: LACTOBACILLUS RHAMNOSUS
  26. LORAZEPAM. [Concomitant]
     Active Substance: LORAZEPAM
  27. ZOLOFT [Concomitant]
     Active Substance: SERTRALINE HYDROCHLORIDE
  28. VITAMIN D3 [Concomitant]
     Active Substance: CHOLECALCIFEROL
  29. PULMOZYME [Concomitant]
     Active Substance: DORNASE ALFA
  30. SODIUM CHLORIDE. [Concomitant]
     Active Substance: SODIUM CHLORIDE
     Dosage: 3%

REACTIONS (1)
  - Infective pulmonary exacerbation of cystic fibrosis [Unknown]

NARRATIVE: CASE EVENT DATE: 20190429
